FAERS Safety Report 13591850 (Version 1)
Quarter: 2017Q2

REPORT INFORMATION
  Report Type: Report from Study
  Country: IT (occurrence: IT)
  Receive Date: 20170530
  Receipt Date: 20170530
  Transmission Date: 20170830
  Serious: Yes (Hospitalization, Other)
  Sender: FDA-Public Use
  Company Number: IT-MYLANLABS-2017M1029187

PATIENT
  Age: 34 Year
  Sex: Female

DRUGS (1)
  1. ALPRAZOLAM. [Suspect]
     Active Substance: ALPRAZOLAM
     Indication: PRODUCT USED FOR UNKNOWN INDICATION
     Dosage: 20 ML, TOTAL
     Route: 048
     Dates: start: 20170226, end: 20170226

REACTIONS (3)
  - Drug use disorder [Unknown]
  - Toxicity to various agents [Unknown]
  - Sopor [Unknown]

NARRATIVE: CASE EVENT DATE: 20170226
